FAERS Safety Report 5239637-9 (Version None)
Quarter: 2007Q1

REPORT INFORMATION
  Report Type: 
  Country: None (occurrence: None)
  Receive Date: 20070216
  Receipt Date: 20070207
  Transmission Date: 20070707
  Serious: Yes (Hospitalization)
  Sender: FDA-Public Use
  Company Number: FR-GLAXOSMITHKLINE-B0457941A

PATIENT
  Age: 83 Year
  Sex: Female

DRUGS (5)
  1. ALKERAN [Suspect]
     Dosage: 6TAB PER DAY
     Route: 048
     Dates: start: 20070205
  2. ARANESP [Concomitant]
     Route: 065
     Dates: start: 20070206
  3. DEXAMETHASONE [Concomitant]
     Dosage: 40MG WEEKLY
     Route: 065
     Dates: start: 20070205
  4. LIPANOR [Concomitant]
     Route: 065
  5. FOSAMAX [Concomitant]
     Indication: OSTEOPOROSIS
     Route: 065

REACTIONS (5)
  - ASTHENIA [None]
  - BLOOD PRESSURE DECREASED [None]
  - BONE PAIN [None]
  - FALL [None]
  - TACHYCARDIA [None]
